FAERS Safety Report 7586538-7 (Version None)
Quarter: 2011Q3

REPORT INFORMATION
  Report Type: 
  Country: None (occurrence: None)
  Receive Date: 20110701
  Receipt Date: 20110622
  Transmission Date: 20111222
  Serious: Yes (Other)
  Sender: FDA-Public Use
  Company Number: JP-ROCHE-786453

PATIENT
  Sex: Male

DRUGS (3)
  1. AVASTIN [Suspect]
     Indication: LUNG NEOPLASM MALIGNANT
     Route: 041
     Dates: start: 20110201
  2. ALIMTA [Concomitant]
     Route: 041
  3. CARBOPLATIN [Concomitant]
     Route: 041

REACTIONS (2)
  - PAROTITIS [None]
  - BLOOD AMYLASE INCREASED [None]
